FAERS Safety Report 9173226 (Version 1)
Quarter: 2013Q1

REPORT INFORMATION
  Report Type: Spontaneous
  Country: US (occurrence: None)
  Receive Date: 20130319
  Receipt Date: 20130319
  Transmission Date: 20140127
  Serious: Yes (Disabling, Other)
  Sender: FDA-Public Use
  Company Number: None

PATIENT
  Age: 56 Year
  Sex: Female
  Weight: 79.38 kg

DRUGS (1)
  1. AZITHROMYCIN Z-PAK, 6-PAK 250MG [Suspect]
     Indication: INFECTION PROPHYLAXIS
     Dosage: 250 MG TWICE A DAY ON DAY ONE THEN ONCE A DAY/5D PO
     Route: 048
     Dates: start: 20130304, end: 20130309

REACTIONS (3)
  - Heart rate irregular [None]
  - Mitral valve prolapse [None]
  - Condition aggravated [None]
